FAERS Safety Report 4827054-2 (Version None)
Quarter: 2005Q4

REPORT INFORMATION
  Report Type: 
  Country: None (occurrence: None)
  Receive Date: 20051014
  Receipt Date: 20050622
  Transmission Date: 20060501
  Serious: No
  Sender: FDA-Public Use
  Company Number: 2005SP000734

PATIENT
  Age: 61 Year
  Sex: Male
  Weight: 90.7194 kg

DRUGS (7)
  1. LUNESTA [Suspect]
     Indication: INSOMNIA
     Dosage: 2 MG; HS; ORAL
     Route: 048
     Dates: start: 20050511, end: 20050511
  2. ARICEPT [Concomitant]
  3. NAMENDA [Concomitant]
  4. LIPITOR [Concomitant]
  5. CLONOPIN [Concomitant]
  6. NUTRACEA [Concomitant]
  7. VIVARIN [Concomitant]

REACTIONS (3)
  - DRUG INEFFECTIVE [None]
  - DYSGEUSIA [None]
  - INSOMNIA [None]
